FAERS Safety Report 4555042-2 (Version None)
Quarter: 2005Q1

REPORT INFORMATION
  Report Type: 
  Country: None (occurrence: None)
  Receive Date: 20041228
  Receipt Date: 20040409
  Transmission Date: 20050727
  Serious: Yes (Other)
  Sender: FDA-Public Use
  Company Number: PHEH2004US04082

PATIENT
  Age: 60 Year
  Sex: Female

DRUGS (7)
  1. AREDIA [Suspect]
  2. ZOMETA [Suspect]
  3. AROMASIN [Concomitant]
  4. EXEMESTANE (EXEMESTANE) [Concomitant]
  5. FASLODEX [Concomitant]
  6. CIPROFLOXACIN [Concomitant]
  7. TAMOXIFEN CITRATE [Concomitant]

REACTIONS (2)
  - OSTEONECROSIS [None]
  - TOOTH EXTRACTION [None]
